FAERS Safety Report 16264216 (Version 1)
Quarter: 2019Q2

REPORT INFORMATION
  Report Type: Spontaneous
  Country: US (occurrence: US)
  Receive Date: 20190328
  Receipt Date: 20190328
  Transmission Date: 20190711
  Serious: No
  Sender: FDA-Public Use
  Company Number: None

PATIENT

DRUGS (1)
  1. VITAMIN D NOS [Suspect]
     Active Substance: VITAMIN D NOS

REACTIONS (4)
  - Incorrect dose administered [None]
  - Overdose [None]
  - Product dispensing error [None]
  - Drug level increased [None]

NARRATIVE: CASE EVENT DATE: 2019
